APPROVED DRUG PRODUCT: HEPARIN SODIUM 20,000 UNITS IN DEXTROSE 5%
Active Ingredient: HEPARIN SODIUM
Strength: 40 UNITS/ML
Dosage Form/Route: INJECTABLE;INJECTION
Application: N017029 | Product #021
Applicant: FRESENIUS KABI USA LLC
Approved: Aug 24, 2017 | RLD: Yes | RS: No | Type: DISCN